FAERS Safety Report 8853339 (Version 2)
Quarter: 2013Q1

REPORT INFORMATION
  Report Type: Spontaneous
  Country: US (occurrence: US)
  Receive Date: 20121023
  Receipt Date: 20130130
  Transmission Date: 20140127
  Serious: No
  Sender: FDA-Public Use
  Company Number: US-009507513-1210USA006637

PATIENT
  Age: 18 Year
  Sex: Female
  Weight: 65.76 kg

DRUGS (1)
  1. IMPLANON [Suspect]
     Indication: CONTRACEPTION
     Dosage: 1 TIME INSERTION IN HER LEFT ARM
     Dates: start: 20101201

REACTIONS (5)
  - Breast pain [Unknown]
  - Abdominal pain lower [Unknown]
  - Pain in extremity [Unknown]
  - Mood swings [Unknown]
  - Metrorrhagia [Unknown]
